FAERS Safety Report 7279162-7 (Version None)
Quarter: 2011Q1

REPORT INFORMATION
  Report Type: 
  Country: None (occurrence: None)
  Receive Date: 20110207
  Receipt Date: 20110125
  Transmission Date: 20110831
  Serious: Yes (Hospitalization)
  Sender: FDA-Public Use
  Company Number: GB-MYLANLABS-2011S1001613

PATIENT
  Age: 64 Year
  Sex: Male

DRUGS (5)
  1. SUNITINIB MALATE [Suspect]
     Indication: TRANSITIONAL CELL CARCINOMA
     Route: 048
     Dates: start: 20100911, end: 20110105
  2. BENDROFLUMETHIAZIDE [Suspect]
     Indication: PRODUCT USED FOR UNKNOWN INDICATION
     Route: 048
     Dates: start: 20090813, end: 20110105
  3. CANDESARTAN [Concomitant]
     Indication: PRODUCT USED FOR UNKNOWN INDICATION
     Route: 048
     Dates: start: 20091116, end: 20110105
  4. AMLODIPINE [Suspect]
     Indication: PRODUCT USED FOR UNKNOWN INDICATION
     Route: 048
     Dates: start: 20090505, end: 20110105
  5. METFORMIN HCL [Suspect]
     Indication: PRODUCT USED FOR UNKNOWN INDICATION
     Route: 048
     Dates: start: 20090407, end: 20110105

REACTIONS (1)
  - PYREXIA [None]
